FAERS Safety Report 7807232-0 (Version None)
Quarter: 2011Q4

REPORT INFORMATION
  Report Type: 
  Country: None (occurrence: None)
  Receive Date: 20111011
  Receipt Date: 20111005
  Transmission Date: 20120403
  Serious: Yes (Other)
  Sender: FDA-Public Use
  Company Number: US-PFIZER INC-2011238385

PATIENT
  Sex: Female
  Weight: 41.7 kg

DRUGS (1)
  1. DEPO-PROVERA [Suspect]
     Indication: CONTRACEPTION
     Dosage: UNK
     Route: 058
     Dates: start: 20110801

REACTIONS (6)
  - WEIGHT DECREASED [None]
  - CRYING [None]
  - DEPRESSION [None]
  - POOR QUALITY SLEEP [None]
  - INCORRECT ROUTE OF DRUG ADMINISTRATION [None]
  - RASH [None]
